FAERS Safety Report 5478429-2 (Version None)
Quarter: 2007Q4

REPORT INFORMATION
  Report Type: 
  Country: None (occurrence: None)
  Receive Date: 20071005
  Receipt Date: 20070927
  Transmission Date: 20080405
  Serious: Yes (Life-Threatening)
  Sender: FDA-Public Use
  Company Number: JP-MERCK-0710USA00575

PATIENT
  Age: 45 Year
  Sex: Male

DRUGS (9)
  1. PEPCID RPD [Suspect]
     Route: 048
     Dates: end: 20070914
  2. CALONAL [Suspect]
     Indication: ANTIPYRESIS
     Route: 048
     Dates: start: 20070903, end: 20070914
  3. CALONAL [Suspect]
     Indication: ANALGESIA
     Route: 048
     Dates: start: 20070903, end: 20070914
  4. MUCOSTA [Suspect]
     Indication: PROPHYLAXIS AGAINST GASTROINTESTINAL ULCER
     Route: 048
     Dates: start: 20070903, end: 20070914
  5. DASEN [Suspect]
     Indication: ANTIINFLAMMATORY THERAPY
     Route: 048
     Dates: start: 20070903, end: 20070920
  6. MEDICON [Suspect]
     Indication: ANTITUSSIVE THERAPY
     Route: 048
     Dates: start: 20070903, end: 20070920
  7. MODACIN [Suspect]
     Indication: SYSTEMIC ANTIBACTERIAL THERAPY
     Route: 041
     Dates: start: 20070903, end: 20070914
  8. URSO 250 [Concomitant]
     Route: 048
     Dates: start: 20070906, end: 20070927
  9. NEO-MINOPHAGEN C [Concomitant]
     Route: 041
     Dates: start: 20070906, end: 20070914

REACTIONS (1)
  - HYPERKALAEMIA [None]
